FAERS Safety Report 14543207 (Version 1)
Quarter: 2018Q1

REPORT INFORMATION
  Report Type: Report from Study
  Country: CZ (occurrence: CZ)
  Receive Date: 20180216
  Receipt Date: 20180216
  Transmission Date: 20180509
  Serious: Yes (Other)
  Sender: FDA-Public Use
  Company Number: CZ-BAYER-2018-029559

PATIENT
  Age: 38 Year
  Sex: Female
  Weight: 69 kg

DRUGS (2)
  1. JAYDESS [Suspect]
     Active Substance: LEVONORGESTREL
     Indication: CONTRACEPTION
     Dosage: 14 MCG/24HR, CONT
     Route: 015
     Dates: start: 20170831, end: 20180125
  2. CERUCAL [Concomitant]
     Active Substance: METOCLOPRAMIDE HYDROCHLORIDE
     Dosage: UNK
     Route: 048

REACTIONS (6)
  - Vaginal haemorrhage [Recovered/Resolved]
  - Menometrorrhagia [Recovered/Resolved]
  - Salpingo-oophoritis [Recovered/Resolved]
  - Polymenorrhoea [Recovered/Resolved]
  - Abdominal pain lower [Recovered/Resolved]
  - Genital haemorrhage [None]

NARRATIVE: CASE EVENT DATE: 20171004
